FAERS Safety Report 5390639-1 (Version None)
Quarter: 2007Q3

REPORT INFORMATION
  Report Type: 
  Country: None (occurrence: None)
  Receive Date: 20070712
  Receipt Date: 20070517
  Transmission Date: 20080115
  Serious: Yes (Hospitalization)
  Sender: FDA-Public Use
  Company Number: 6034550

PATIENT
  Age: 71 Year
  Sex: Male

DRUGS (6)
  1. LISINOPRIL [Suspect]
     Indication: HYPERTENSION
     Dosage: 20 MG (20 MG, 1 IN 1 D)
     Route: 048
     Dates: end: 20070501
  2. MELOXICAM [Suspect]
     Indication: GOUT
     Dosage: 7,5 MG (7,5 MG, 1 IN1 D)
     Route: 048
     Dates: end: 20070501
  3. ALLOPURINOL [Concomitant]
  4. COSOPT [Concomitant]
  5. LANSOPRAZOLE [Concomitant]
  6. LERCANIDIPINE [Concomitant]

REACTIONS (5)
  - DEHYDRATION [None]
  - DIARRHOEA [None]
  - METABOLIC ACIDOSIS [None]
  - RENAL FAILURE ACUTE [None]
  - RENAL IMPAIRMENT [None]
